FAERS Safety Report 8839276 (Version 1)
Quarter: 2012Q4

REPORT INFORMATION
  Report Type: Spontaneous
  Country: US (occurrence: None)
  Receive Date: 20121011
  Receipt Date: 20121011
  Transmission Date: 20130627
  Serious: No
  Sender: FDA-Public Use
  Company Number: None

PATIENT
  Age: 6 Year
  Sex: Female
  Weight: 26.7 kg

DRUGS (2)
  1. DIAZEPAM [Suspect]
     Indication: MYOCLONIC ENCEPHALOPATHY OF INFANTS
     Route: 054
     Dates: start: 201209
  2. CIONAZEPAM [Suspect]
     Indication: EPILEPSY
     Route: 048
     Dates: start: 201204

REACTIONS (1)
  - Drug ineffective [None]
